FAERS Safety Report 5118966-3 (Version None)
Quarter: 2006Q3

REPORT INFORMATION
  Report Type: 
  Country: None (occurrence: None)
  Receive Date: 20060927
  Receipt Date: 20060913
  Transmission Date: 20061208
  Serious: Yes (Other)
  Sender: FDA-Public Use
  Company Number: 229842

PATIENT
  Age: 39 Year
  Sex: Female

DRUGS (2)
  1. MABTHERA [Suspect]
     Indication: B-CELL LYMPHOMA
     Dosage: 600 MG, ORAL
     Route: 048
     Dates: start: 20040910
  2. IMMUNOTHERAPY NOS               (IMMUNOMODULATOR NOS) [Concomitant]

REACTIONS (2)
  - BREAST CANCER FEMALE [None]
  - BREAST CANCER RECURRENT [None]
